FAERS Safety Report 7650069-6 (Version None)
Quarter: 2011Q3

REPORT INFORMATION
  Report Type: 
  Country: None (occurrence: None)
  Receive Date: 20110719
  Receipt Date: 20100907
  Transmission Date: 20111222
  Serious: Yes (Other)
  Sender: FDA-Public Use
  Company Number: 163-50794-10091162

PATIENT

DRUGS (1)
  1. VIDAZA [Suspect]
     Indication: MYELODYSPLASTIC SYNDROME
     Dosage: 120 MG, PER DAY X 7 DAYS, PO
     Route: 048

REACTIONS (8)
  - INFECTION [None]
  - FATIGUE [None]
  - FEBRILE NEUTROPENIA [None]
  - VOMITING [None]
  - DIARRHOEA [None]
  - DISEASE PROGRESSION [None]
  - THROMBOCYTOPENIA [None]
  - NAUSEA [None]
